FAERS Safety Report 13100051 (Version 1)
Quarter: 2017Q1

REPORT INFORMATION
  Report Type: Spontaneous
  Country: US (occurrence: US)
  Receive Date: 20170110
  Receipt Date: 20170110
  Transmission Date: 20170428
  Serious: No
  Sender: FDA-Public Use
  Company Number: US-TAIHO ONCOLOGY INC-EU-2016-03321

PATIENT
  Age: 52 Year
  Sex: Male

DRUGS (10)
  1. ONDANSETRON [Concomitant]
     Active Substance: ONDANSETRON
     Dosage: NI
  2. LORAZEPAM. [Concomitant]
     Active Substance: LORAZEPAM
     Dosage: NI
  3. LAMOTRIGINE. [Concomitant]
     Active Substance: LAMOTRIGINE
     Dosage: NI
  4. ATENOLOL. [Concomitant]
     Active Substance: ATENOLOL
     Dosage: NI
  5. ARIPIPRAZOLE. [Concomitant]
     Active Substance: ARIPIPRAZOLE
     Dosage: NI
  6. LISINOPRIL. [Concomitant]
     Active Substance: LISINOPRIL
     Dosage: NI
  7. MIRTAZAPINE. [Concomitant]
     Active Substance: MIRTAZAPINE
     Dosage: NI
  8. LONSURF [Suspect]
     Active Substance: TIPIRACIL HYDROCHLORIDE\TRIFLURIDINE
     Route: 048
     Dates: start: 20160913, end: 2016
  9. IBUPROFEN. [Concomitant]
     Active Substance: IBUPROFEN
     Dosage: NI
  10. STIVARGA [Concomitant]
     Active Substance: REGORAFENIB
     Dosage: NI

REACTIONS (2)
  - Diarrhoea [Unknown]
  - Vomiting [Unknown]

NARRATIVE: CASE EVENT DATE: 201612
